FAERS Safety Report 8216352-0 (Version None)
Quarter: 2012Q1

REPORT INFORMATION
  Report Type: 
  Country: None (occurrence: None)
  Receive Date: 20120316
  Receipt Date: 20120313
  Transmission Date: 20120608
  Serious: Yes (Other)
  Sender: FDA-Public Use
  Company Number: PHEH2012US005734

PATIENT
  Age: 63 Year
  Sex: Female

DRUGS (6)
  1. VITAMIN B COMPLEX CAP [Concomitant]
  2. CALCIUM [Concomitant]
     Dosage: UNK UKN, UNK
  3. FISH OIL [Concomitant]
  4. VITAMIN D [Concomitant]
     Dosage: UNK UKN, UNK
  5. RECLAST [Suspect]
     Dosage: UNK UKN, UNK
     Route: 042
     Dates: start: 20110501
  6. STEROIDS NOS [Concomitant]

REACTIONS (6)
  - PYREXIA [None]
  - FEELING ABNORMAL [None]
  - PAIN [None]
  - ARTHRALGIA [None]
  - PIGMENTATION DISORDER [None]
  - HERPES ZOSTER [None]
